FAERS Safety Report 23597323 (Version 1)
Quarter: 2024Q1

REPORT INFORMATION
  Report Type: Spontaneous
  Country: US (occurrence: None)
  Receive Date: 20240305
  Receipt Date: 20240305
  Transmission Date: 20240410
  Serious: Yes (Hospitalization)
  Sender: FDA-Public Use
  Company Number: None

PATIENT
  Age: 12 Year
  Sex: Male

DRUGS (1)
  1. PULMOZYME [Suspect]
     Active Substance: DORNASE ALFA
     Indication: Cystic fibrosis
     Dosage: 1MG/ML TWICE DAILY INHALATION
     Route: 055
     Dates: start: 201701

REACTIONS (1)
  - Pulmonary function test decreased [None]

NARRATIVE: CASE EVENT DATE: 20231228
